FAERS Safety Report 13924183 (Version 1)
Quarter: 2017Q3

REPORT INFORMATION
  Report Type: Spontaneous
  Country: CA (occurrence: CA)
  Receive Date: 20170831
  Receipt Date: 20170831
  Transmission Date: 20171127
  Serious: Yes (Other)
  Sender: FDA-Public Use
  Company Number: CA-TEVA-802167ACC

PATIENT
  Age: 18 Year
  Sex: Male
  Weight: 84 kg

DRUGS (11)
  1. METHOTREXATE. [Suspect]
     Active Substance: METHOTREXATE
     Indication: MEDIASTINAL DISORDER
  2. THIOGUANINE [Concomitant]
     Active Substance: THIOGUANINE
  3. L-ASPARAGINASE [Concomitant]
     Active Substance: ASPARAGINASE
  4. VINCRISTINE SULFATE. [Concomitant]
     Active Substance: VINCRISTINE SULFATE
     Indication: NON-HODGKIN^S LYMPHOMA
  5. DOXORUBICIN HYDROCHLORIDE INJECTION [Concomitant]
     Active Substance: DOXORUBICIN HYDROCHLORIDE
  6. METHOTREXATE. [Concomitant]
     Active Substance: METHOTREXATE
  7. CYCLOPHOSPHAMIDE. [Concomitant]
     Active Substance: CYCLOPHOSPHAMIDE
  8. CYTARABINE INJECTION [Concomitant]
     Active Substance: CYTARABINE
  9. MERCAPTOPURINE. [Concomitant]
     Active Substance: MERCAPTOPURINE
  10. METHOTREXATE. [Suspect]
     Active Substance: METHOTREXATE
     Indication: NON-HODGKIN^S LYMPHOMA
     Route: 042
  11. DAUNOMYCIN [Concomitant]
     Active Substance: DAUNORUBICIN

REACTIONS (2)
  - Disturbance in attention [Not Recovered/Not Resolved]
  - Reading disorder [Not Recovered/Not Resolved]
